FAERS Safety Report 14605220 (Version 2)
Quarter: 2018Q1

REPORT INFORMATION
  Report Type: Spontaneous
  Country: NO (occurrence: NO)
  Receive Date: 20180306
  Receipt Date: 20180313
  Transmission Date: 20180509
  Serious: Yes (Hospitalization)
  Sender: FDA-Public Use
  Company Number: NO-SUNOVION-2018SUN000840

PATIENT

DRUGS (5)
  1. ALBYL-E [Concomitant]
     Active Substance: ASPIRIN\MAGNESIUM OXIDE
     Indication: CEREBRAL SMALL VESSEL ISCHAEMIC DISEASE
     Dosage: 75 MG, QD
     Route: 048
  2. LATUDA [Suspect]
     Active Substance: LURASIDONE HYDROCHLORIDE
     Indication: PSYCHOTIC DISORDER
     Dosage: 37 MG, QD
     Route: 048
     Dates: start: 20171229, end: 20180105
  3. STILNOCT [Concomitant]
     Active Substance: ZOLPIDEM TARTRATE
     Indication: SLEEP DISORDER
     Dosage: 10 MG, QD
     Route: 048
  4. LATUDA [Suspect]
     Active Substance: LURASIDONE HYDROCHLORIDE
     Dosage: 74 MG, HS
     Route: 048
     Dates: start: 20180106, end: 20180113
  5. SOBRIL [Concomitant]
     Active Substance: OXAZEPAM
     Indication: ANXIETY
     Dosage: 25 MG, QD
     Route: 048

REACTIONS (2)
  - Off label use [Recovered/Resolved]
  - Fear of death [Recovered/Resolved]

NARRATIVE: CASE EVENT DATE: 20180108
